FAERS Safety Report 9684866 (Version 2)
Quarter: 2013Q4

REPORT INFORMATION
  Report Type: Report from Study
  Country: CN (occurrence: CN)
  Receive Date: 20131112
  Receipt Date: 20131112
  Transmission Date: 20140711
  Serious: Yes (Other)
  Sender: FDA-Public Use
  Company Number: CN-ROCHE-1219058

PATIENT
  Age: 59 Year
  Sex: Male

DRUGS (2)
  1. PEGASYS [Suspect]
     Indication: HEPATITIS C
     Route: 058
     Dates: start: 20121231, end: 201302
  2. PEGASYS [Suspect]
     Route: 058

REACTIONS (1)
  - White blood cell count decreased [Recovering/Resolving]
